FAERS Safety Report 9311006 (Version 2)
Quarter: 2013Q2

REPORT INFORMATION
  Report Type: Report from Study
  Country: CA (occurrence: CA)
  Receive Date: 20130528
  Receipt Date: 20130610
  Transmission Date: 20140414
  Serious: Yes (Hospitalization)
  Sender: FDA-Public Use
  Company Number: CA-JNJFOC-20130517722

PATIENT
  Age: 62 Year
  Sex: Female
  Weight: 112 kg

DRUGS (14)
  1. REMICADE [Suspect]
     Indication: VASCULITIS
     Dosage: DOSE AT WEEK 0, 2, 6 THAN EVERY 8 WEEKS
     Route: 042
     Dates: start: 20120425
  2. METFORMIN [Concomitant]
     Route: 065
  3. GLICLAZIDE [Concomitant]
     Route: 065
  4. LOPERAMIDE [Concomitant]
     Route: 065
  5. PENTASA [Concomitant]
     Route: 065
  6. INSULIN [Concomitant]
     Route: 065
  7. WARFARIN [Concomitant]
     Route: 065
  8. ATENOLOL [Concomitant]
     Route: 065
  9. SYNTHROID [Concomitant]
     Route: 065
  10. LYRICA [Concomitant]
     Route: 065
  11. ELAVIL [Concomitant]
     Route: 065
  12. LASIX [Concomitant]
     Route: 065
  13. MELOXICAM [Concomitant]
     Route: 065
  14. RAMIPRIL [Concomitant]
     Route: 065

REACTIONS (3)
  - Intestinal perforation [Unknown]
  - Malaise [Unknown]
  - Off label use [Unknown]
